FAERS Safety Report 6585829-6 (Version None)
Quarter: 2010Q1

REPORT INFORMATION
  Report Type: 
  Country: None (occurrence: None)
  Receive Date: 20100217
  Receipt Date: 20100209
  Transmission Date: 20100710
  Serious: Yes (Disabling)
  Sender: FDA-Public Use
  Company Number: US-GENENTECH-290623

PATIENT
  Sex: Female
  Weight: 63.492 kg

DRUGS (3)
  1. XOLAIR [Suspect]
     Indication: DRUG USE FOR UNKNOWN INDICATION
     Dosage: ^2 INJECTIONS^
     Route: 065
     Dates: start: 20090908, end: 20091020
  2. ASTHMA MEDICATION [Concomitant]
     Indication: ASTHMA
  3. EFFEXOR XR [Concomitant]
     Indication: DRUG USE FOR UNKNOWN INDICATION

REACTIONS (6)
  - DYSPNOEA [None]
  - HEADACHE [None]
  - HYPERTENSION [None]
  - OROPHARYNGEAL PAIN [None]
  - PAIN [None]
  - PHARYNGEAL OEDEMA [None]
